FAERS Safety Report 9621309 (Version 1)
Quarter: 2013Q4

REPORT INFORMATION
  Report Type: Spontaneous
  Country: JP (occurrence: JP)
  Receive Date: 20131015
  Receipt Date: 20131015
  Transmission Date: 20140711
  Serious: Yes (Hospitalization)
  Sender: FDA-Public Use
  Company Number: JP-SA-2013SA103484

PATIENT
  Age: 15 Year
  Sex: Female
  Weight: 40 kg

DRUGS (1)
  1. FUROSEMIDE [Suspect]
     Indication: WEIGHT DECREASED
     Route: 065

REACTIONS (8)
  - Pseudo-Bartter syndrome [Unknown]
  - Off label use [Unknown]
  - Hypokalaemia [Recovering/Resolving]
  - Blood chloride decreased [Unknown]
  - Blood uric acid increased [Unknown]
  - Metabolic alkalosis [Recovering/Resolving]
  - Blood bicarbonate increased [Recovering/Resolving]
  - Blood pressure decreased [Unknown]
